FAERS Safety Report 7481600-1 (Version None)
Quarter: 2011Q2

REPORT INFORMATION
  Report Type: 
  Country: None (occurrence: None)
  Receive Date: 20110516
  Receipt Date: 20110506
  Transmission Date: 20111010
  Serious: Yes (Death, Other)
  Sender: FDA-Public Use
  Company Number: JP-ROCHE-767552

PATIENT
  Age: 68 Year
  Weight: 69 kg

DRUGS (9)
  1. PEGASYS [Suspect]
     Indication: HEPATITIS C
     Route: 058
  2. JUZENTAIHOTO [Concomitant]
     Dosage: FORM: GRANULATED POWDER
     Route: 048
     Dates: start: 20100605
  3. COPEGUS [Suspect]
     Indication: HEPATITIS C
     Route: 048
     Dates: start: 20100519, end: 20100614
  4. INSULIN [Concomitant]
     Dosage: FORM: PERORAL AGENT
     Route: 048
     Dates: start: 20110101
  5. COPEGUS [Suspect]
     Route: 048
     Dates: start: 20100615, end: 20100716
  6. COPEGUS [Suspect]
     Route: 048
     Dates: start: 20100810
  7. URSO 250 [Concomitant]
     Dosage: FORM: PERORAL AGENT
     Route: 048
  8. AMARYL [Concomitant]
     Route: 048
  9. COPEGUS [Suspect]
     Route: 048
     Dates: start: 20100717, end: 20100809

REACTIONS (5)
  - INTERSTITIAL LUNG DISEASE [None]
  - MELAENA [None]
  - VARICOSE VEIN RUPTURED [None]
  - ABDOMINAL DISTENSION [None]
  - HAEMATEMESIS [None]
